FAERS Safety Report 25517432 (Version 1)
Quarter: 2025Q3

REPORT INFORMATION
  Report Type: Spontaneous
  Country: EU (occurrence: EU)
  Receive Date: 20250704
  Receipt Date: 20250704
  Transmission Date: 20251020
  Serious: Yes (Other)
  Sender: BIOGEN
  Company Number: EU-BIOGEN-2025BI01315398

PATIENT
  Age: 25 Year

DRUGS (1)
  1. SKYCLARYS [Suspect]
     Active Substance: OMAVELOXOLONE
     Indication: Friedreich^s ataxia
     Route: 050

REACTIONS (4)
  - Cardiac failure [Unknown]
  - Systemic lupus erythematosus [Unknown]
  - Drug interaction [Unknown]
  - Brain natriuretic peptide increased [Unknown]
